FAERS Safety Report 5352336-8 (Version None)
Quarter: 2007Q2

REPORT INFORMATION
  Report Type: 
  Country: None (occurrence: None)
  Receive Date: 20070607
  Receipt Date: 20070607
  Transmission Date: 20071010
  Serious: Yes (Life-Threatening, Hospitalization)
  Sender: FDA-Public Use
  Company Number: None

PATIENT
  Age: 17 Year
  Sex: Female

DRUGS (2)
  1. MICROGESTIN 1.5/30 [Suspect]
     Dosage: ONE TABLET DAILY PO
     Route: 048
     Dates: end: 20061114
  2. VICODIN [Concomitant]

REACTIONS (3)
  - ANTITHROMBIN III DECREASED [None]
  - DEEP VEIN THROMBOSIS [None]
  - FACTOR V LEIDEN MUTATION [None]
